FAERS Safety Report 6607587-9 (Version None)
Quarter: 2010Q1

REPORT INFORMATION
  Report Type: 
  Country: None (occurrence: None)
  Receive Date: 20100217
  Receipt Date: 20100205
  Transmission Date: 20100710
  Serious: Yes (Other)
  Sender: FDA-Public Use
  Company Number: AEUSA201000044

PATIENT
  Age: 34 Year
  Sex: Female
  Weight: 86.1834 kg

DRUGS (12)
  1. GAMUNEX [Suspect]
     Indication: IMMUNODEFICIENCY COMMON VARIABLE
     Dosage: 40 GM; 1X; IV
     Route: 042
     Dates: start: 20100127, end: 20100127
  2. VIVAGLOBIN [Suspect]
     Indication: IMMUNODEFICIENCY COMMON VARIABLE
     Dosage: SC
     Route: 058
     Dates: end: 20100101
  3. PREDNISONE TAB [Concomitant]
  4. BENADRYL [Concomitant]
  5. ZOFRAN [Concomitant]
  6. THYROID TAB [Concomitant]
  7. PREVACID [Concomitant]
  8. AMLODIPINE [Concomitant]
  9. ADVAIR DISKUS 100/50 [Concomitant]
  10. NASONEX [Concomitant]
  11. PROAIR HFA [Concomitant]
  12. ETODOLAC [Concomitant]

REACTIONS (3)
  - ANGIOEDEMA [None]
  - DRUG HYPERSENSITIVITY [None]
  - HEADACHE [None]
